APPROVED DRUG PRODUCT: CYCLOSPORINE
Active Ingredient: CYCLOSPORINE
Strength: 100MG
Dosage Form/Route: CAPSULE;ORAL
Application: A065040 | Product #002 | TE Code: AB2
Applicant: APOTEX INC
Approved: May 9, 2002 | RLD: No | RS: No | Type: RX